FAERS Safety Report 4967082-X (Version None)
Quarter: 2006Q2

REPORT INFORMATION
  Report Type: 
  Country: None (occurrence: None)
  Receive Date: 20060403
  Receipt Date: 20060315
  Transmission Date: 20061013
  Serious: No
  Sender: FDA-Public Use
  Company Number: 6021423

PATIENT

DRUGS (1)
  1. AMNESTEEM [Suspect]
     Indication: ACNE
     Dosage: ORAL
     Route: 048
     Dates: start: 20060201, end: 20060301

REACTIONS (2)
  - ANGER [None]
  - DEPRESSION [None]
